FAERS Safety Report 4932218-3 (Version None)
Quarter: 2006Q1

REPORT INFORMATION
  Report Type: 
  Country: None (occurrence: None)
  Receive Date: 20060228
  Receipt Date: 20060217
  Transmission Date: 20060701
  Serious: Yes (Hospitalization)
  Sender: FDA-Public Use
  Company Number: 2006011756

PATIENT
  Age: 78 Year
  Sex: Male

DRUGS (4)
  1. ZYVOX [Suspect]
     Indication: OSTEOMYELITIS
     Dosage: SEE IMAGE
     Dates: end: 20060105
  2. ZYVOX [Suspect]
     Indication: PSEUDOMONAL SEPSIS
     Dosage: SEE IMAGE
     Dates: end: 20060105
  3. ZYVOX [Suspect]
     Indication: OSTEOMYELITIS
     Dosage: SEE IMAGE
     Dates: start: 20060106, end: 20060116
  4. ZYVOX [Suspect]
     Indication: PSEUDOMONAL SEPSIS
     Dosage: SEE IMAGE
     Dates: start: 20060106, end: 20060116

REACTIONS (1)
  - CONFUSIONAL STATE [None]
